FAERS Safety Report 8296756 (Version 2)
Quarter: 2012Q4

REPORT INFORMATION
  Report Type: 
  Country: US (occurrence: US)
  Receive Date: 20111216
  Receipt Date: 20121219
  Transmission Date: 20130627
  Serious: Yes (Hospitalization, Disabling)
  Sender: FDA-Public Use
  Company Number: US-UCBSA-047122

PATIENT
  Age: 41 Year
  Sex: Female

DRUGS (15)
  1. XYREM [Suspect]
     Indication: NARCOLEPSY
     Route: 048
     Dates: start: 20080319
  2. XYREM [Suspect]
     Indication: SOMNOLENCE
     Route: 048
     Dates: start: 20080319
  3. XYREM [Suspect]
     Indication: NARCOLEPSY
     Dosage: NIGHTLY
     Route: 048
     Dates: end: 20111123
  4. XYREM [Suspect]
     Indication: SOMNOLENCE
     Dosage: NIGHTLY
     Route: 048
     Dates: end: 20111123
  5. XYREM [Suspect]
     Indication: NARCOLEPSY
     Dosage: NIGHTLY
     Route: 048
     Dates: start: 20111126
  6. XYREM [Suspect]
     Indication: SOMNOLENCE
     Dosage: NIGHTLY
     Route: 048
     Dates: start: 20111126
  7. KEPPRA [Suspect]
     Route: 048
     Dates: start: 201111
  8. PROZAC [Suspect]
     Indication: DEPRESSION
     Route: 048
     Dates: start: 201109, end: 201110
  9. PROZAC [Suspect]
     Indication: DEPRESSION
     Route: 048
     Dates: start: 201110, end: 201111
  10. PROZAC [Suspect]
     Indication: DEPRESSION
     Dosage: LOWERED TO UNKNOWN DOSE
     Route: 048
     Dates: start: 201111, end: 201111
  11. CABERGOLINE [Concomitant]
  12. LEVOTHYROXINE SODIUM [Concomitant]
  13. NORETHINDRONE ACETATE [Concomitant]
  14. LEUPROLIDE ACETATE [Concomitant]
  15. ESZOPICLONE [Concomitant]

REACTIONS (7)
  - Convulsion [Recovered/Resolved]
  - Abasia [Unknown]
  - Activities of daily living impaired [Unknown]
  - Anxiety [Unknown]
  - Malaise [Unknown]
  - Depression [Unknown]
  - Drug hypersensitivity [Unknown]
